FAERS Safety Report 6218486-9 (Version None)
Quarter: 2009Q2

REPORT INFORMATION
  Report Type: 
  Country: None (occurrence: None)
  Receive Date: 20090608
  Receipt Date: 20090605
  Transmission Date: 20091009
  Serious: Yes (Hospitalization)
  Sender: FDA-Public Use
  Company Number: B0576949A

PATIENT
  Sex: Female
  Weight: 50 kg

DRUGS (6)
  1. ARIXTRA [Suspect]
     Indication: PHLEBITIS
     Dosage: 7.5MG PER DAY
     Route: 058
     Dates: start: 20090224, end: 20090303
  2. PREVISCAN [Suspect]
     Dosage: 20MG UNKNOWN
     Route: 048
     Dates: start: 20090224, end: 20090401
  3. SINGULAIR [Concomitant]
     Indication: DRUG USE FOR UNKNOWN INDICATION
     Route: 065
  4. SYMBICORT [Concomitant]
     Indication: DRUG USE FOR UNKNOWN INDICATION
     Route: 065
  5. EZETROL [Concomitant]
     Indication: DRUG USE FOR UNKNOWN INDICATION
     Dosage: 10MG UNKNOWN
     Route: 065
  6. ASPEGIC 1000 [Concomitant]
     Indication: DRUG USE FOR UNKNOWN INDICATION
     Dosage: 100MG UNKNOWN
     Route: 065

REACTIONS (19)
  - BONE PAIN [None]
  - DECREASED APPETITE [None]
  - DYSAESTHESIA [None]
  - FOLATE DEFICIENCY [None]
  - HEADACHE [None]
  - HYPERAESTHESIA [None]
  - HYPOALBUMINAEMIA [None]
  - LIVER DISORDER [None]
  - NECK PAIN [None]
  - NEUROPATHY PERIPHERAL [None]
  - PAIN IN JAW [None]
  - PAIN OF SKIN [None]
  - PARAESTHESIA [None]
  - POLYNEUROPATHY [None]
  - TINNITUS [None]
  - TRIGEMINAL NEURALGIA [None]
  - VISUAL ACUITY REDUCED [None]
  - VITAMIN B12 DEFICIENCY [None]
  - WEIGHT DECREASED [None]
